FAERS Safety Report 11781172 (Version 4)
Quarter: 2017Q1

REPORT INFORMATION
  Report Type: Spontaneous
  Country: US (occurrence: US)
  Receive Date: 20151126
  Receipt Date: 20170113
  Transmission Date: 20170428
  Serious: Yes (Hospitalization)
  Sender: FDA-Public Use
  Company Number: US-PFIZER INC-2015389939

PATIENT
  Age: 61 Year
  Sex: Female
  Weight: 67 kg

DRUGS (19)
  1. CYMBALTA [Concomitant]
     Active Substance: DULOXETINE HYDROCHLORIDE
     Indication: PAIN
     Dosage: 60 MG, 1X/DAY
     Route: 048
     Dates: start: 1992
  2. ATENOLOL. [Concomitant]
     Active Substance: ATENOLOL
     Indication: HYPERTENSION
     Dosage: 25 MG, 1X/DAY
  3. DULOXETINE. [Concomitant]
     Active Substance: DULOXETINE
     Dosage: 60 MG, DAILY
     Route: 048
  4. DURAGESIC [Concomitant]
     Active Substance: FENTANYL
     Dosage: UNK(50 MCG/HR TRANSDERMAL PATCH)(APPLY 1 PATCH EVERY 72 HOURS BY TRANSDERMAL ROUTE FOR 30 DAYS)
     Route: 062
  5. LYRICA [Suspect]
     Active Substance: PREGABALIN
     Indication: DIABETIC NEUROPATHY
     Dosage: 300 MG, 2X/DAY
     Route: 048
     Dates: end: 201509
  6. LYRICA [Suspect]
     Active Substance: PREGABALIN
     Indication: SCIATIC NERVE INJURY
  7. HYDROCHLOROTHIAZIDE. [Concomitant]
     Active Substance: HYDROCHLOROTHIAZIDE
     Dosage: 50 MG, DAILY
     Route: 048
  8. METFORMIN [Concomitant]
     Active Substance: METFORMIN HYDROCHLORIDE
     Indication: DIABETES MELLITUS
     Dosage: 1000 MG, 1X/DAY (AT DINNER)
     Route: 048
  9. CYCLOBENZAPRINE [Concomitant]
     Active Substance: CYCLOBENZAPRINE
     Dosage: 10 MG, AS NEEDED
  10. TIZANIDINE. [Concomitant]
     Active Substance: TIZANIDINE
     Dosage: (1 TABLET EVERY DAY ORAL ROUTE AS NEEDED )4 MG, AS NEEDED
     Route: 048
  11. HYDROCODONE [Concomitant]
     Active Substance: HYDROCODONE
     Dosage: UNK, AS NEEDED(1 TABLET EVERY 8 HOURS BY ORAL ROUTE AS NEEDED FOR 30 DAYS )
  12. FENTANYL. [Concomitant]
     Active Substance: FENTANYL
     Indication: PAIN
     Dosage: 50 MG, UNK(ONE PATCH TOPICALLY EVERY 72 HOURS)
     Route: 061
  13. HUMALOG [Concomitant]
     Active Substance: INSULIN LISPRO
     Dosage: UNK
  14. DIAZEPAM. [Concomitant]
     Active Substance: DIAZEPAM
     Dosage: 10 MG, AS NEEDED(1 TABLET EVERY DAY BY ORAL ROUTE AS NEEDED)
     Route: 048
  15. ACETAMINOPHEN W/HYDROCODONE [Concomitant]
     Active Substance: ACETAMINOPHEN\HYDROCODONE
     Dosage: UNK UNK, AS NEEDED (EVERY 8 HOURS BY ORAL ROUTE AS NEEDE)[HYDROCODONE: 10MG]/[ ACETAMINOPHEN:325 MG]
     Route: 048
  16. HCTZ [Concomitant]
     Active Substance: HYDROCHLOROTHIAZIDE
     Dosage: 50 MG, 1X/DAY
  17. MOVANTIK [Concomitant]
     Active Substance: NALOXEGOL OXALATE
     Dosage: 25 MG, DAILY(1 TABLET EVERY DAY ORAL ROUTE AS DIRECTED FOR 30 DAYS )
     Route: 048
  18. HYDROCODONE [Concomitant]
     Active Substance: HYDROCODONE
     Indication: PAIN
     Dosage: UNK UNK, 2X/DAY(10/325MG ONE TABLET)
     Route: 048
  19. LANTUS [Concomitant]
     Active Substance: INSULIN GLARGINE
     Indication: DIABETES MELLITUS
     Dosage: UNK UNK,1X/DAY (40 UNITS) AT NIGHT
     Route: 058

REACTIONS (4)
  - Weight decreased [Unknown]
  - Malaise [Unknown]
  - Pain [Unknown]
  - Arthropathy [Unknown]
